FAERS Safety Report 7082140 (Version 2)
Quarter: 2013Q3

REPORT INFORMATION
  Report Type: Spontaneous
  Country: US (occurrence: US)
  Receive Date: 20090814
  Receipt Date: 20130904
  Transmission Date: 20140515
  Serious: Yes (Hospitalization)
  Sender: FDA-Public Use
  Company Number: US-PFIZER INC-2009249943

PATIENT
  Age: 46 Year
  Sex: Male

DRUGS (5)
  1. ZIPRASIDONE HCL [Suspect]
     Dosage: TITRATED TO 80MG TWICE DAILY
     Route: 048
  2. RISPERIDONE [Suspect]
     Indication: SCHIZOPHRENIA
     Dosage: TITRATED FROM 1 TO 3MG TWICE DAILY OVER 3 DAYS
     Route: 048
  3. QUETIAPINE [Suspect]
     Indication: SCHIZOPHRENIA
     Dosage: 200MG IN THE MORNING AND 800MG AT NIGHT
     Route: 048
  4. QUETIAPINE [Suspect]
     Dosage: 200 MG, 1X/DAY NIGHTLY
     Route: 048
  5. ARIPIPRAZOLE [Suspect]
     Indication: SCHIZOPHRENIA
     Dosage: 15 MG, 1X/DAY, EVERY MORNING
     Route: 048

REACTIONS (1)
  - Inappropriate antidiuretic hormone secretion [Unknown]
